FAERS Safety Report 24037520 (Version 1)
Quarter: 2024Q3

REPORT INFORMATION
  Report Type: Spontaneous
  Country: CN (occurrence: CN)
  Receive Date: 20240702
  Receipt Date: 20240702
  Transmission Date: 20241016
  Serious: Yes (Other)
  Sender: NOVO NORDISK
  Company Number: None

PATIENT
  Age: 76 Year
  Sex: Female
  Weight: 39 kg

DRUGS (6)
  1. NOVORAPID [Suspect]
     Active Substance: INSULIN ASPART
     Dosage: 4 IU, TID
     Route: 058
     Dates: start: 20240518
  2. NOVORAPID [Suspect]
     Active Substance: INSULIN ASPART
     Indication: Type 2 diabetes mellitus
     Dosage: 17 IU, QD (6U IN THE MORNING, 5U AT NOON, 6U IN THE EVENING, TID)
     Route: 058
     Dates: start: 20240517, end: 20240517
  3. TRESIBA [Concomitant]
     Active Substance: INSULIN DEGLUDEC
     Indication: Type 2 diabetes mellitus
     Dosage: 6 IU, QD (EVERY NIGHT)
     Route: 058
     Dates: start: 20240517
  4. INSULIN HUMAN [Concomitant]
     Active Substance: INSULIN HUMAN
     Indication: Type 2 diabetes mellitus
     Dosage: 50U MICROPUMP 5U INTRAVENOUS DRIP
     Route: 042
     Dates: start: 20240517
  5. INSULIN HUMAN [Concomitant]
     Active Substance: INSULIN HUMAN
     Dosage: 5U AND 5% GLUCOSE INJECTION (GS) 500ML AND POTASSIUM CHLORIDE INJECTION 1G INTRAVENOUS DRIP
     Dates: start: 20240517
  6. SODIUM CHLORIDE [Concomitant]
     Active Substance: SODIUM CHLORIDE
     Indication: Vehicle solution use
     Dosage: 50 ML, QD (0.9% WITH NORMAL SALINE (NS) VIA MICROPUMP)
     Route: 058
     Dates: start: 20240517

REACTIONS (2)
  - Palpitations [Recovered/Resolved]
  - Irritability [Recovered/Resolved]

NARRATIVE: CASE EVENT DATE: 20240517
